FAERS Safety Report 9095249 (Version 1)
Quarter: 2013Q1

REPORT INFORMATION
  Report Type: Spontaneous
  Country: GB (occurrence: None)
  Receive Date: 20130123
  Receipt Date: 20130123
  Transmission Date: 20140127
  Serious: Yes (Disabling, Other)
  Sender: FDA-Public Use
  Company Number: 2013GR_BP0000212

PATIENT
  Age: 49 Year
  Sex: Male
  Weight: 96 kg

DRUGS (4)
  1. FINASTERIDE 5MG [Suspect]
     Route: 048
     Dates: start: 20041201, end: 20080616
  2. FINASTERIDE 5MG [Suspect]
     Route: 048
     Dates: start: 20041201, end: 20080616
  3. TAMSULOSIN [Suspect]
     Route: 048
     Dates: start: 20041201, end: 20080616
  4. TAMSULOSIN [Suspect]
     Route: 048
     Dates: start: 20041201, end: 20080616

REACTIONS (4)
  - Sexual dysfunction [None]
  - Haematospermia [None]
  - Erectile dysfunction [None]
  - Prostate cancer [None]
